FAERS Safety Report 11185123 (Version 1)
Quarter: 2015Q2

REPORT INFORMATION
  Report Type: Spontaneous
  Country: JP (occurrence: JP)
  Receive Date: 20150612
  Receipt Date: 20150612
  Transmission Date: 20150821
  Serious: Yes (Hospitalization)
  Sender: FDA-Public Use
  Company Number: JP-PFIZER INC-2015159408

PATIENT
  Age: 60 Year
  Sex: Male
  Weight: 53.5 kg

DRUGS (16)
  1. EPADEL [Concomitant]
     Active Substance: ICOSAPENT
  2. DAI-KENCHU-TO [Concomitant]
     Active Substance: MALTOSE
     Dosage: UNK
     Dates: start: 20150406, end: 20150409
  3. ZYVOX [Suspect]
     Active Substance: LINEZOLID
     Indication: INFECTIOUS PLEURAL EFFUSION
     Dosage: 600 MG, 2X/DAY
     Route: 048
     Dates: start: 20150330, end: 20150407
  4. REGPARA [Concomitant]
     Active Substance: CINACALCET HYDROCHLORIDE
  5. ENALAPRIL [Concomitant]
     Active Substance: ENALAPRIL
  6. MICARDIS [Concomitant]
     Active Substance: TELMISARTAN
  7. ZYVOX [Suspect]
     Active Substance: LINEZOLID
     Indication: INFECTIOUS PLEURAL EFFUSION
     Dosage: UNK
     Route: 042
     Dates: start: 20150312
  8. NEXIUM [Concomitant]
     Active Substance: ESOMEPRAZOLE MAGNESIUM
  9. RISUMIC [Concomitant]
     Active Substance: AMEZINIUM METILSULFATE
  10. DOPS [Concomitant]
     Active Substance: DROXIDOPA
  11. ADALAT CC [Concomitant]
     Active Substance: NIFEDIPINE
  12. CODEINE PHOSPHATE [Concomitant]
     Active Substance: CODEINE PHOSPHATE
     Dosage: UNK
  13. BAYASPIRIN [Concomitant]
     Active Substance: ASPIRIN
  14. MAINTATE [Concomitant]
     Active Substance: BISOPROLOL FUMARATE
  15. CRESTOR [Concomitant]
     Active Substance: ROSUVASTATIN CALCIUM
  16. NOVOLIN 30R [Concomitant]
     Active Substance: INSULIN HUMAN

REACTIONS (6)
  - Interstitial lung disease [Recovering/Resolving]
  - C-reactive protein increased [Recovering/Resolving]
  - Cardiac failure chronic [Recovering/Resolving]
  - Pneumonia bacterial [Recovering/Resolving]
  - Hypoxia [Recovering/Resolving]
  - Platelet count decreased [Recovered/Resolved]

NARRATIVE: CASE EVENT DATE: 20150314
